FAERS Safety Report 15469249 (Version 1)
Quarter: 2018Q4

REPORT INFORMATION
  Report Type: Spontaneous
  Country: US (occurrence: US)
  Receive Date: 20181001
  Receipt Date: 20181001
  Transmission Date: 20190205
  Serious: Yes (Life-Threatening)
  Sender: FDA-Public Use
  Company Number: None

PATIENT
  Age: 53 Year
  Sex: Male
  Weight: 123.15 kg

DRUGS (1)
  1. CETUXIMAB. [Suspect]
     Active Substance: CETUXIMAB
     Indication: RECTAL CANCER
     Route: 042
     Dates: start: 20180907, end: 20180907

REACTIONS (7)
  - Malaise [None]
  - Hypotension [None]
  - Infusion related reaction [None]
  - Hyperhidrosis [None]
  - Rash [None]
  - Dyspnoea [None]
  - Feeling hot [None]

NARRATIVE: CASE EVENT DATE: 20180907
